FAERS Safety Report 5020696-3 (Version None)
Quarter: 2006Q2

REPORT INFORMATION
  Report Type: 
  Country: None (occurrence: None)
  Receive Date: 20060602
  Receipt Date: 20060517
  Transmission Date: 20061013
  Serious: Yes (Hospitalization, Other)
  Sender: FDA-Public Use
  Company Number: US200602001420

PATIENT
  Age: 72 Year
  Sex: Male

DRUGS (11)
  1. HUMULIN N [Suspect]
     Indication: DIABETES MELLITUS
  2. HUMALOG PEN [Suspect]
     Indication: DIABETES MELLITUS
     Dosage: SEE IMAGE
     Route: 058
     Dates: start: 20060202
  3. HUMALOG PEN [Suspect]
     Indication: DIABETES MELLITUS
     Dosage: SEE IMAGE
     Route: 058
     Dates: start: 20060202
  4. HUMALOG PEN [Suspect]
     Indication: DIABETES MELLITUS
     Dosage: SEE IMAGE
     Route: 058
     Dates: start: 20060202
  5. LASIX [Concomitant]
  6. COREG [Concomitant]
  7. DIGOXIN [Concomitant]
  8. SPIRONOLACTONE [Concomitant]
  9. IMDUR [Concomitant]
  10. AMITRIPTYLINE HCL [Concomitant]
  11. ADVICOR [Concomitant]

REACTIONS (3)
  - BLOOD GLUCOSE INCREASED [None]
  - CORONARY ARTERY DISEASE [None]
  - PHARMACEUTICAL PRODUCT COMPLAINT [None]
